FAERS Safety Report 18568919 (Version 1)
Quarter: 2020Q4

REPORT INFORMATION
  Report Type: Spontaneous
  Country: US (occurrence: US)
  Receive Date: 20201201
  Receipt Date: 20201201
  Transmission Date: 20210114
  Serious: Yes (Other)
  Sender: FDA-Public Use
  Company Number: None

PATIENT
  Sex: Male

DRUGS (1)
  1. FAMOTIDINE 20MG [Suspect]
     Active Substance: FAMOTIDINE

REACTIONS (1)
  - Constipation [None]
